FAERS Safety Report 8085063-7 (Version None)
Quarter: 2012Q1

REPORT INFORMATION
  Report Type: 
  Country: None (occurrence: None)
  Receive Date: 20120128
  Receipt Date: 20110314
  Transmission Date: 20120608
  Serious: No
  Sender: FDA-Public Use
  Company Number: US-ABBOTT-11P-163-0714741-00

PATIENT
  Sex: Female
  Weight: 64.468 kg

DRUGS (6)
  1. HUMIRA [Suspect]
     Indication: CROHN'S DISEASE
     Dates: start: 20101201
  2. PREDNISONE TAB [Concomitant]
     Indication: CROHN'S DISEASE
  3. PRILOSEC [Concomitant]
     Indication: DYSPEPSIA
  4. VITAMIN B-12 [Concomitant]
     Indication: VITAMIN B12 DEFICIENCY
     Route: 030
  5. LOMOTIL [Concomitant]
     Indication: DIARRHOEA
  6. DEMEROL [Concomitant]
     Indication: PAIN

REACTIONS (3)
  - HEADACHE [None]
  - UPPER RESPIRATORY TRACT INFECTION [None]
  - OROPHARYNGEAL PAIN [None]
